FAERS Safety Report 7412473-0 (Version None)
Quarter: 2011Q2

REPORT INFORMATION
  Report Type: 
  Country: None (occurrence: None)
  Receive Date: 20110413
  Receipt Date: 20110405
  Transmission Date: 20111010
  Serious: Yes (Hospitalization)
  Sender: FDA-Public Use
  Company Number: PHHO2010BR15281

PATIENT
  Sex: Male
  Weight: 71.6 kg

DRUGS (7)
  1. AFINITOR [Suspect]
     Indication: METASTATIC RENAL CELL CARCINOMA
     Dosage: 5 MG, UNK
     Route: 048
     Dates: start: 20100520, end: 20100529
  2. LISADOR [Concomitant]
     Indication: MUSCULOSKELETAL CHEST PAIN
  3. AVASTIN [Suspect]
     Dosage: 10 MG/KG EVERY WEEK
     Route: 042
  4. LISADOR [Concomitant]
     Indication: HEADACHE
     Dosage: UNK
  5. AVASTIN [Suspect]
     Indication: METASTATIC RENAL CELL CARCINOMA
     Dosage: UNK
     Dates: start: 20100520, end: 20100529
  6. OMEPRAZOLE [Concomitant]
     Indication: PAIN PROPHYLAXIS
     Dosage: UNK
  7. AFINITOR [Suspect]
     Dosage: 10 MG, QD
     Route: 048
     Dates: start: 20091001, end: 20110329

REACTIONS (3)
  - JAUNDICE [None]
  - PNEUMONIA [None]
  - HEPATOTOXICITY [None]
